FAERS Safety Report 6145265-3 (Version None)
Quarter: 2009Q2

REPORT INFORMATION
  Report Type: 
  Country: None (occurrence: None)
  Receive Date: 20090406
  Receipt Date: 20090325
  Transmission Date: 20091009
  Serious: Yes (Hospitalization, Other)
  Sender: FDA-Public Use
  Company Number: PHHY2009FR12494

PATIENT
  Sex: Female

DRUGS (5)
  1. TEGRETOL [Suspect]
     Indication: EPILEPSY
     Dosage: 1000 MG DAILY
  2. DI-ANTALVIC [Interacting]
     Indication: SCIATICA
     Dosage: UPTO 1  DF DAILY
  3. LAMICTAL [Concomitant]
     Dosage: 125 MG, BID
  4. RIVOTRIL [Concomitant]
     Dosage: 8 DROPS DAILY
  5. EFFEXOR [Concomitant]
     Dosage: 37.5 MG, BID

REACTIONS (11)
  - ANGIOPATHY [None]
  - BALANCE DISORDER [None]
  - DIPLOPIA [None]
  - DRUG INTERACTION [None]
  - DRUG LEVEL ABOVE THERAPEUTIC [None]
  - EYE DISORDER [None]
  - FALL [None]
  - SCIATICA [None]
  - SENSORY DISTURBANCE [None]
  - VERTIGO [None]
  - VISUAL IMPAIRMENT [None]
